FAERS Safety Report 9493359 (Version 2)
Quarter: 2013Q3

REPORT INFORMATION
  Report Type: Report from Study
  Country: IT (occurrence: IT)
  Receive Date: 20130902
  Receipt Date: 20130902
  Transmission Date: 20140515
  Serious: Yes (Death, Hospitalization)
  Sender: FDA-Public Use
  Company Number: PHHO2012IT001864

PATIENT
  Age: 74 Year
  Sex: Male
  Weight: 83 kg

DRUGS (10)
  1. ALISKIREN [Suspect]
     Indication: CARDIOVASCULAR DISORDER
     Route: 048
     Dates: start: 20090518, end: 20111222
  2. LOSARTAN [Suspect]
     Indication: HYPERTENSION
     Dosage: 100 MG, QD
     Route: 048
     Dates: start: 2004, end: 20120127
  3. BISOPROLOL [Concomitant]
     Indication: HYPERTENSION
     Dosage: 2.5 MG, OD
     Route: 048
     Dates: start: 2000
  4. CARDURA [Concomitant]
     Indication: HYPERTENSION
     Dosage: 4 MG, OD
     Route: 048
     Dates: start: 2007
  5. ADALAT CRONO [Concomitant]
     Indication: HYPERTENSION
     Dosage: 60 MG, QD
     Route: 048
     Dates: start: 2010
  6. FUROSEMIDE [Concomitant]
     Indication: HYPERTENSION
     Dosage: 125 MG, QD
     Route: 048
     Dates: start: 2011, end: 201204
  7. AMARYL [Concomitant]
     Indication: TYPE 2 DIABETES MELLITUS
     Dosage: UNK
     Route: 048
     Dates: start: 2002, end: 20120126
  8. PLAVIX [Concomitant]
     Indication: PERIPHERAL ARTERIAL OCCLUSIVE DISEASE
     Dosage: 75 MG, QD
     Route: 048
     Dates: start: 2002, end: 201204
  9. DEPONIT [Concomitant]
     Indication: CROHN^S DISEASE
     Dosage: 10 MG, QD
     Route: 048
     Dates: start: 201110, end: 201204
  10. APIDRA [Concomitant]
     Indication: TYPE 2 DIABETES MELLITUS
     Dosage: 60 U, TID
     Dates: start: 2012, end: 201204

REACTIONS (2)
  - Renal failure [Fatal]
  - Hyperkalaemia [Not Recovered/Not Resolved]
